FAERS Safety Report 11215834 (Version 1)
Quarter: 2015Q2

REPORT INFORMATION
  Report Type: Spontaneous
  Country: NL (occurrence: NL)
  Receive Date: 20150624
  Receipt Date: 20150624
  Transmission Date: 20150821
  Serious: Yes (Other)
  Sender: FDA-Public Use
  Company Number: NL-PFIZER INC-2015207252

PATIENT
  Age: 51 Year
  Sex: Female
  Weight: 68 kg

DRUGS (3)
  1. FERROFUMARAAT [Concomitant]
     Dosage: 200 MG, 1X/DAY
     Dates: start: 201504, end: 20150514
  2. TRANEXAMIC ACID. [Suspect]
     Active Substance: TRANEXAMIC ACID
     Indication: VAGINAL HAEMORRHAGE
     Dosage: 1000 MG, 3X/DAY
     Dates: start: 20150512, end: 20150515
  3. SALOFALK /00747601/ [Concomitant]
     Active Substance: MESALAMINE
     Dosage: 1 DF, 1X/DAY
     Dates: start: 20130715

REACTIONS (6)
  - Malaise [Unknown]
  - Abdominal pain upper [Unknown]
  - Proctitis ulcerative [Recovered/Resolved with Sequelae]
  - Condition aggravated [Recovered/Resolved with Sequelae]
  - Frequent bowel movements [Unknown]
  - Weight decreased [Unknown]

NARRATIVE: CASE EVENT DATE: 20150514
